FAERS Safety Report 4777463-5 (Version None)
Quarter: 2005Q3

REPORT INFORMATION
  Report Type: 
  Country: None (occurrence: None)
  Receive Date: 20050923
  Receipt Date: 20050622
  Transmission Date: 20060218
  Serious: Yes (Other)
  Sender: FDA-Public Use
  Company Number: PHBS2005BE09177

PATIENT
  Age: 45 Year
  Sex: Female
  Weight: 86 kg

DRUGS (8)
  1. BONDRONAT [Concomitant]
     Dosage: UNK, UNK
     Route: 065
     Dates: start: 20041020, end: 20050501
  2. ZOMETA [Suspect]
     Indication: METASTASES TO BONE
     Dosage: 4 MG, QMO
     Route: 042
     Dates: start: 20020601, end: 20041006
  3. RADIATION THERAPY [Concomitant]
     Dates: start: 20021211, end: 20021230
  4. ARIMIDEX [Concomitant]
     Dates: start: 20020101
  5. CYCLOBLASTINE [Concomitant]
     Dates: start: 20040201
  6. FARMORUBICINE [Concomitant]
     Dates: start: 20040201
  7. ENDOXAN [Concomitant]
     Dates: start: 20040201
  8. TAXOTERE [Concomitant]
     Dates: start: 20040504

REACTIONS (9)
  - ASEPTIC NECROSIS BONE [None]
  - IMPAIRED HEALING [None]
  - METASTASES TO BONE [None]
  - OSTEITIS [None]
  - OSTEONECROSIS [None]
  - PAIN [None]
  - PERIODONTITIS [None]
  - TOOTH EXTRACTION [None]
  - TOOTHACHE [None]
